FAERS Safety Report 7114414-2 (Version None)
Quarter: 2010Q4

REPORT INFORMATION
  Report Type: 
  Country: None (occurrence: None)
  Receive Date: 20101119
  Receipt Date: 20101113
  Transmission Date: 20110411
  Serious: Yes (Other)
  Sender: FDA-Public Use
  Company Number: US-GENENTECH-309781

PATIENT
  Age: 14 Year
  Sex: Male

DRUGS (4)
  1. XOLAIR [Suspect]
     Indication: ATOPY
  2. ASTHMA MEDICATION [Concomitant]
     Indication: ASTHMA
  3. ALLERGY MEDICATION (UNK INGREDIENTS) [Concomitant]
     Indication: HYPERSENSITIVITY
  4. STEROIDS (UNK INGREDIENTS) [Concomitant]
     Indication: PRODUCT USED FOR UNKNOWN INDICATION
     Route: 048

REACTIONS (1)
  - IMMUNODEFICIENCY COMMON VARIABLE [None]
